FAERS Safety Report 5331274-0 (Version None)
Quarter: 2007Q2

REPORT INFORMATION
  Report Type: 
  Country: None (occurrence: None)
  Receive Date: 20070306
  Receipt Date: 20060314
  Transmission Date: 20071010
  Serious: Yes (Hospitalization)
  Sender: FDA-Public Use
  Company Number: A03200601690

PATIENT
  Age: 86 Year
  Sex: Female

DRUGS (2)
  1. PLAVIX [Suspect]
     Indication: CEREBROVASCULAR ACCIDENT
     Dosage: 75 MG QD - ORAL
     Route: 048
     Dates: start: 20060501
  2. PLAVIX [Suspect]
     Indication: SENSATION OF HEAVINESS
     Dosage: 75 MG QD - ORAL
     Route: 048
     Dates: start: 20060501

REACTIONS (1)
  - PAIN IN EXTREMITY [None]
